FAERS Safety Report 10664905 (Version 2)
Quarter: 2014Q4

REPORT INFORMATION
  Report Type: Spontaneous
  Country: JP (occurrence: JP)
  Receive Date: 20141219
  Receipt Date: 20141219
  Transmission Date: 20150529
  Serious: Yes (Other)
  Sender: FDA-Public Use
  Company Number: JP-UNITED THERAPEUTICS-UNT-2014-012199

PATIENT
  Age: 49 Year
  Sex: Female

DRUGS (2)
  1. REMODULIN [Suspect]
     Active Substance: TREPROSTINIL
     Indication: PULMONARY ARTERIAL HYPERTENSION
     Dosage: 9.5 MCL/H TO 15 MCL/H, UNK
     Route: 058
     Dates: start: 20141201, end: 20141212
  2. REMODULIN [Suspect]
     Active Substance: TREPROSTINIL
     Indication: PULMONARY HYPERTENSION

REACTIONS (10)
  - Hypotension [Recovered/Resolved]
  - Infusion site pain [Unknown]
  - Infusion site warmth [Unknown]
  - Infusion site infection [Unknown]
  - Infusion site erythema [Unknown]
  - Off label use [Unknown]
  - Metrorrhagia [Unknown]
  - Infusion site oedema [Unknown]
  - Loss of consciousness [Recovered/Resolved]
  - Infusion site induration [Unknown]

NARRATIVE: CASE EVENT DATE: 20141201
